FAERS Safety Report 6713072-6 (Version None)
Quarter: 2010Q2

REPORT INFORMATION
  Report Type: 
  Country: None (occurrence: None)
  Receive Date: 20100506
  Receipt Date: 20100429
  Transmission Date: 20101027
  Serious: Yes (Hospitalization)
  Sender: FDA-Public Use
  Company Number: US-SANOFI-AVENTIS-2010SA025402

PATIENT
  Age: 78 Year
  Sex: Female

DRUGS (1)
  1. MULTAQ [Suspect]
     Route: 048

REACTIONS (1)
  - PULMONARY OEDEMA [None]
